FAERS Safety Report 9476787 (Version 2)
Quarter: 2013Q3

REPORT INFORMATION
  Report Type: Spontaneous
  Country: US (occurrence: US)
  Receive Date: 20130826
  Receipt Date: 20130924
  Transmission Date: 20140515
  Serious: Yes (Hospitalization)
  Sender: FDA-Public Use
  Company Number: US-SANOFI-AVENTIS-2013SA082452

PATIENT
  Age: 73 Year
  Sex: Female
  Weight: 54.43 kg

DRUGS (7)
  1. PLAVIX [Suspect]
     Indication: CEREBROVASCULAR ACCIDENT
     Route: 048
  2. DILTIAZEM [Concomitant]
     Route: 065
  3. CARVEDILOL [Concomitant]
     Route: 065
  4. SYNTHROID [Concomitant]
     Route: 065
  5. ATIVAN [Concomitant]
     Route: 065
  6. CYMBALTA [Concomitant]
     Route: 065
  7. HYDROCODONE [Concomitant]
     Dosage: DOSE - 7.5/325 MG
     Route: 065

REACTIONS (2)
  - Vascular occlusion [Unknown]
  - Hypotension [Not Recovered/Not Resolved]
